FAERS Safety Report 14468253 (Version 3)
Quarter: 2018Q2

REPORT INFORMATION
  Report Type: Report from Study
  Country: US (occurrence: US)
  Receive Date: 20180131
  Receipt Date: 20180403
  Transmission Date: 20180711
  Serious: Yes (Hospitalization, Other)
  Sender: FDA-Public Use
  Company Number: US-GILEAD-2017-0305896

PATIENT
  Age: 53 Year
  Sex: Female
  Weight: 108.84 kg

DRUGS (23)
  1. AMBRISENTAN [Suspect]
     Active Substance: AMBRISENTAN
     Indication: PULMONARY ARTERIAL HYPERTENSION
     Dosage: 10 MG, QD
     Route: 065
     Dates: start: 20170709, end: 20171107
  2. DULOXETINE. [Concomitant]
     Active Substance: DULOXETINE
  3. GLUCAGON. [Concomitant]
     Active Substance: GLUCAGON
  4. OXYCODONE [Concomitant]
     Active Substance: OXYCODONE
  5. FUROSEMIDE. [Concomitant]
     Active Substance: FUROSEMIDE
  6. LORAZEPAM. [Concomitant]
     Active Substance: LORAZEPAM
  7. DIPHENHYDRAMINE. [Concomitant]
     Active Substance: DIPHENHYDRAMINE
  8. EPOPROSTENOL. [Concomitant]
     Active Substance: EPOPROSTENOL
  9. METOPROLOL. [Concomitant]
     Active Substance: METOPROLOL
  10. ROPINIROLE. [Concomitant]
     Active Substance: ROPINIROLE
  11. SODIUM CHLORIDE. [Concomitant]
     Active Substance: SODIUM CHLORIDE
  12. ONDANSETRON [Concomitant]
     Active Substance: ONDANSETRON
  13. QUETIAPINE. [Concomitant]
     Active Substance: QUETIAPINE
  14. AMBRISENTAN [Suspect]
     Active Substance: AMBRISENTAN
     Indication: HEART DISEASE CONGENITAL
  15. SILDENAFIL. [Concomitant]
     Active Substance: SILDENAFIL
  16. AMIODARONE [Concomitant]
     Active Substance: AMIODARONE
  17. APAP W/BUTALBITAL [Concomitant]
  18. VELETRI [Suspect]
     Active Substance: EPOPROSTENOL
     Indication: PRODUCT USED FOR UNKNOWN INDICATION
     Route: 065
  19. TOPIRAMATE. [Concomitant]
     Active Substance: TOPIRAMATE
  20. ASPIRIN                            /00002701/ [Concomitant]
     Active Substance: ASPIRIN
  21. FERROUS SULFATE. [Concomitant]
     Active Substance: FERROUS SULFATE
  22. PREDNISONE. [Concomitant]
     Active Substance: PREDNISONE
  23. NOVOLOG [Concomitant]
     Active Substance: INSULIN ASPART

REACTIONS (21)
  - Fatigue [Recovered/Resolved]
  - Headache [Not Recovered/Not Resolved]
  - Device malfunction [Unknown]
  - Flushing [Not Recovered/Not Resolved]
  - Aspartate aminotransferase decreased [Unknown]
  - Platelet count decreased [Unknown]
  - Oropharyngeal pain [Unknown]
  - Hypoxia [Not Recovered/Not Resolved]
  - Cough [Unknown]
  - Peripheral swelling [Recovered/Resolved]
  - Stress [Unknown]
  - Dysphonia [Unknown]
  - Device issue [Unknown]
  - Organising pneumonia [Unknown]
  - Feeling abnormal [Recovered/Resolved]
  - Abdominal pain upper [Recovered/Resolved]
  - Blood alkaline phosphatase increased [Unknown]
  - Haemoglobin decreased [Unknown]
  - Unevaluable event [Not Recovered/Not Resolved]
  - Dyspnoea [Unknown]
  - Alanine aminotransferase decreased [Unknown]

NARRATIVE: CASE EVENT DATE: 20170821
